FAERS Safety Report 4500806-4 (Version None)
Quarter: 2004Q4

REPORT INFORMATION
  Report Type: 
  Country: None (occurrence: None)
  Receive Date: 20041109
  Receipt Date: 20041029
  Transmission Date: 20050328
  Serious: Yes (Hospitalization)
  Sender: FDA-Public Use
  Company Number: HQWYE467001OCT04

PATIENT
  Age: 64 Year
  Sex: Male

DRUGS (12)
  1. ZOSYN [Suspect]
     Indication: ABSCESS
     Dosage: 3.375 G 1 X PER 6 HR, INTRAVENOUS
     Route: 042
     Dates: start: 20040920, end: 20040929
  2. ZOSYN [Suspect]
     Indication: OSTEOMYELITIS
     Dosage: 3.375 G 1 X PER 6 HR, INTRAVENOUS
     Route: 042
     Dates: start: 20040920, end: 20040929
  3. LOPRESSOR [Concomitant]
  4. INSULIN [Concomitant]
  5. VANCOMYCIN [Concomitant]
  6. PROTONIX [Concomitant]
  7. FLUCONAZOLE [Concomitant]
  8. CLINDAMYCIN (CLINDAMYCIN) [Concomitant]
  9. RIFAMPICIN [Concomitant]
  10. PERCOCET [Concomitant]
  11. FENTANYL [Concomitant]
  12. LACTOBACILLUS ACIDOPILUS (LACTOBACILLUS ACIDOPILUS) [Concomitant]

REACTIONS (6)
  - BLOOD SODIUM INCREASED [None]
  - BLOOD UREA INCREASED [None]
  - HYPERNATRAEMIA [None]
  - HYPOVOLAEMIA [None]
  - NEPHROGENIC DIABETES INSIPIDUS [None]
  - POLYURIA [None]
